FAERS Safety Report 6783613-1 (Version None)
Quarter: 2010Q2

REPORT INFORMATION
  Report Type: 
  Country: None (occurrence: None)
  Receive Date: 20100622
  Receipt Date: 20100610
  Transmission Date: 20101027
  Serious: Yes (Hospitalization, Other)
  Sender: FDA-Public Use
  Company Number: FI-ROCHE-664059

PATIENT
  Sex: Female

DRUGS (7)
  1. MIRCERA [Suspect]
     Route: 058
     Dates: start: 20081015
  2. MIRCERA [Suspect]
     Route: 058
     Dates: start: 20090401, end: 20091023
  3. SIMVASTATIN [Concomitant]
     Indication: HYPERCHOLESTEROLAEMIA
     Route: 048
  4. ATACAND [Concomitant]
     Indication: HYPERTENSION
  5. LASIX [Concomitant]
     Indication: HYPERTENSION
     Dosage: FREQUENCY: EVERY OTHER DAY.
     Route: 048
  6. ASASANTIN RETARD [Concomitant]
     Dosage: DOSE: 1 PROLONGED RELEASE CAPSULE, FREQUENCY: ONCE PER DAY
     Route: 048
  7. LEVOTHYROXINE SODIUM [Concomitant]
     Indication: HYPOTHYROIDISM
     Dosage: DOSE: 1/2 TABLET, FREQUENCY: ONCE PER DAY.
     Route: 048

REACTIONS (2)
  - METASTASES TO LIVER [None]
  - NEUROENDOCRINE TUMOUR [None]
